FAERS Safety Report 16172554 (Version 1)
Quarter: 2019Q2

REPORT INFORMATION
  Report Type: Spontaneous
  Country: PT (occurrence: PT)
  Receive Date: 20190409
  Receipt Date: 20190409
  Transmission Date: 20190711
  Serious: Yes (Other)
  Sender: FDA-Public Use
  Company Number: PT-UCBSA-2019015044

PATIENT
  Age: 64 Year
  Sex: Female

DRUGS (6)
  1. PENTOXIFYLLINE. [Concomitant]
     Active Substance: PENTOXIFYLLINE
     Indication: ANGIOPATHY
     Dosage: UNKNOWN DOSE
  2. VASOPROST [Suspect]
     Active Substance: ALPROSTADIL
     Indication: ANGIOPATHY
     Dosage: EVERY 5 WEEKS
  3. VASOPROST [Suspect]
     Active Substance: ALPROSTADIL
     Indication: OFF LABEL USE
  4. ACETYLSALICYLIC ACID [Concomitant]
     Active Substance: ASPIRIN
     Indication: ANGIOPATHY
     Dosage: UNKNOWN DOSE
  5. HYDROXYCHLOROQUINE [Concomitant]
     Active Substance: HYDROXYCHLOROQUINE
     Indication: ANGIOPATHY
     Dosage: UNKNOWN DOSE
  6. NIFEDIPINE. [Concomitant]
     Active Substance: NIFEDIPINE
     Indication: ANGIOPATHY
     Dosage: UNKNOWN DOSE

REACTIONS (4)
  - Skin ulcer [Recovered/Resolved]
  - Off label use [Unknown]
  - Sclerodactylia [Recovered/Resolved]
  - Pulmonary arterial hypertension [Recovered/Resolved]
